FAERS Safety Report 10668474 (Version 3)
Quarter: 2016Q3

REPORT INFORMATION
  Report Type: Spontaneous
  Country: DE (occurrence: US)
  Receive Date: 20141222
  Receipt Date: 20160714
  Transmission Date: 20161109
  Serious: No
  Sender: FDA-Public Use
  Company Number: US-009507513-1107USA02865

PATIENT
  Sex: Male
  Weight: 64.4 kg

DRUGS (3)
  1. PROPECIA [Suspect]
     Active Substance: FINASTERIDE
     Indication: ANDROGENETIC ALOPECIA
     Dosage: 1 MG, UNK
     Route: 048
     Dates: start: 20050428
  2. PROPECIA [Suspect]
     Active Substance: FINASTERIDE
     Dosage: 4 MG, QD
     Route: 048
     Dates: start: 20050502
  3. PROPECIA [Suspect]
     Active Substance: FINASTERIDE
     Dosage: 1 UNK, UNK
     Route: 048
     Dates: start: 20080219, end: 200812

REACTIONS (20)
  - Vasectomy [Unknown]
  - Otitis media acute [Unknown]
  - Dizziness [Unknown]
  - Anorgasmia [Unknown]
  - Anxiety [Not Recovered/Not Resolved]
  - Prescribed overdose [Unknown]
  - Nasal septum deviation [Unknown]
  - Urethritis [Unknown]
  - Cognitive disorder [Unknown]
  - Sexual dysfunction [Unknown]
  - Viral infection [Unknown]
  - Gastroenteritis viral [Unknown]
  - Blood testosterone decreased [Unknown]
  - Depression [Not Recovered/Not Resolved]
  - Libido decreased [Unknown]
  - Erectile dysfunction [Unknown]
  - Back pain [Unknown]
  - Nicotine dependence [Unknown]
  - Contusion [Unknown]
  - Abdominal pain lower [Unknown]

NARRATIVE: CASE EVENT DATE: 20050502
